FAERS Safety Report 6170697-7 (Version None)
Quarter: 2009Q2

REPORT INFORMATION
  Report Type: 
  Country: None (occurrence: None)
  Receive Date: 20090428
  Receipt Date: 20090416
  Transmission Date: 20091009
  Serious: Yes (Hospitalization)
  Sender: FDA-Public Use
  Company Number: IT-CELGENEUS-083-21880-09021109

PATIENT
  Sex: Female

DRUGS (11)
  1. REVLIMID [Suspect]
     Indication: MULTIPLE MYELOMA
     Route: 048
     Dates: start: 20090119, end: 20090130
  2. REVLIMID [Suspect]
     Route: 048
     Dates: end: 20090208
  3. ZYLORIC [Concomitant]
     Indication: HYPERURICAEMIA
     Route: 048
     Dates: start: 20090113, end: 20090208
  4. ZOVIRAX [Concomitant]
     Indication: ANTIVIRAL PROPHYLAXIS
     Route: 048
  5. LEVOXACIN [Concomitant]
     Indication: DRUG USE FOR UNKNOWN INDICATION
     Route: 065
  6. MEPRAL [Concomitant]
     Indication: PROPHYLAXIS
     Route: 065
  7. TRIMETHOPRIM/SULPHAMETROXAZOLE [Concomitant]
     Route: 065
  8. ACETYLSALICYLIC ACID [Concomitant]
     Indication: THROMBOSIS PROPHYLAXIS
     Route: 065
  9. DEXAMETHASONE 4MG TAB [Concomitant]
     Indication: PROPHYLAXIS
     Route: 048
     Dates: start: 20090119, end: 20090119
  10. DEXAMETHASONE 4MG TAB [Concomitant]
     Route: 048
     Dates: start: 20090126, end: 20090126
  11. ALLOPURINOL [Concomitant]
     Indication: PROPHYLAXIS
     Route: 065

REACTIONS (3)
  - PYREXIA [None]
  - THROMBOPHLEBITIS SUPERFICIAL [None]
  - TOXIC SKIN ERUPTION [None]
